FAERS Safety Report 25436598 (Version 5)
Quarter: 2025Q3

REPORT INFORMATION
  Report Type: Report from Study
  Country: CA (occurrence: CA)
  Receive Date: 20250614
  Receipt Date: 20250905
  Transmission Date: 20251021
  Serious: Yes (Other)
  Sender: TAKEDA
  Company Number: CA-TAKEDA-2025TUS053106

PATIENT
  Sex: Female

DRUGS (8)
  1. VEDOLIZUMAB [Suspect]
     Active Substance: VEDOLIZUMAB
     Indication: Colitis ulcerative
  2. VEDOLIZUMAB [Suspect]
     Active Substance: VEDOLIZUMAB
  3. MESALAMINE [Concomitant]
     Active Substance: MESALAMINE
  4. MESALAMINE [Concomitant]
     Active Substance: MESALAMINE
  5. Calcium 600 plus vitamin d3 [Concomitant]
  6. MINERALS\VITAMINS [Concomitant]
     Active Substance: MINERALS\VITAMINS
  7. GLUCOSAMINE [Concomitant]
     Active Substance: GLUCOSAMINE
  8. PANTOPRAZOLE SODIUM [Concomitant]
     Active Substance: PANTOPRAZOLE SODIUM

REACTIONS (7)
  - Haematochezia [Recovering/Resolving]
  - Rectal haemorrhage [Unknown]
  - Somnolence [Unknown]
  - Impaired work ability [Unknown]
  - Frequent bowel movements [Recovering/Resolving]
  - Social problem [Unknown]
  - Fatigue [Unknown]
